FAERS Safety Report 7032014-X (Version None)
Quarter: 2010Q4

REPORT INFORMATION
  Report Type: 
  Country: None (occurrence: None)
  Receive Date: 20101001
  Receipt Date: 20100923
  Transmission Date: 20110411
  Serious: Yes (Other)
  Sender: FDA-Public Use
  Company Number: 019172

PATIENT
  Sex: Female

DRUGS (2)
  1. KEPPRA [Suspect]
     Dosage: (ORAL)
     Route: 048
     Dates: end: 20100802
  2. LOVENOX [Concomitant]

REACTIONS (1)
  - THROMBOCYTOPENIA [None]
